FAERS Safety Report 18168956 (Version 1)
Quarter: 2020Q3

REPORT INFORMATION
  Report Type: Spontaneous
  Country: US (occurrence: US)
  Receive Date: 20200819
  Receipt Date: 20200819
  Transmission Date: 20201103
  Serious: No
  Sender: FDA-Public Use
  Company Number: None

PATIENT
  Age: 65 Year
  Sex: Female
  Weight: 81.7 kg

DRUGS (1)
  1. REMDESIVIR. [Suspect]
     Active Substance: REMDESIVIR
     Indication: COVID-19
     Dates: start: 20200815

REACTIONS (4)
  - Infusion site extravasation [None]
  - Peripheral ischaemia [None]
  - Paravenous drug administration [None]
  - Peripheral swelling [None]

NARRATIVE: CASE EVENT DATE: 20200818
